FAERS Safety Report 7561161-9 (Version None)
Quarter: 2011Q2

REPORT INFORMATION
  Report Type: 
  Country: None (occurrence: None)
  Receive Date: 20110621
  Receipt Date: 20101019
  Transmission Date: 20111010
  Serious: No
  Sender: FDA-Public Use
  Company Number: US-ASTRAZENECA-2010SE47170

PATIENT
  Sex: Female

DRUGS (2)
  1. PULMICORT FLEXHALER [Suspect]
     Route: 055
  2. ZOMIG [Suspect]
     Route: 048

REACTIONS (4)
  - EMOTIONAL DISORDER [None]
  - DIABETES MELLITUS [None]
  - HYPERTENSION [None]
  - HEADACHE [None]
